FAERS Safety Report 7610396-5 (Version None)
Quarter: 2011Q3

REPORT INFORMATION
  Report Type: 
  Country: None (occurrence: None)
  Receive Date: 20110715
  Receipt Date: 20110711
  Transmission Date: 20111222
  Serious: No
  Sender: FDA-Public Use
  Company Number: US-PFIZER INC-2011156313

PATIENT
  Sex: Female
  Weight: 80.726 kg

DRUGS (2)
  1. LOESTRIN FE 1/20 [Concomitant]
     Indication: CONTRACEPTION
     Dosage: UNK, 1X/DAY
  2. ADVIL MIGRAINE LIQUI-GELS [Suspect]
     Indication: MIGRAINE
     Dosage: 200 MG, AS NEEDED
     Route: 048
     Dates: start: 20110101

REACTIONS (5)
  - NASOPHARYNGITIS [None]
  - FLUSHING [None]
  - INFLUENZA [None]
  - SKIN DISORDER [None]
  - RESPIRATORY TRACT CONGESTION [None]
